FAERS Safety Report 9830334 (Version 1)
Quarter: 2014Q1

REPORT INFORMATION
  Report Type: Spontaneous
  Country: US (occurrence: US)
  Receive Date: 20140120
  Receipt Date: 20140120
  Transmission Date: 20141002
  Serious: Yes (Death, Hospitalization, Disabling)
  Sender: FDA-Public Use
  Company Number: US-BAYER-2014-007369

PATIENT
  Age: 26 Year
  Sex: Female
  Weight: 140.59 kg

DRUGS (6)
  1. YASMIN [Suspect]
     Indication: HIRSUTISM
     Dosage: UNK
  2. YASMIN [Suspect]
     Indication: MENSTRUAL CYCLE MANAGEMENT
  3. ZOLOFT [Concomitant]
     Dosage: UNK
  4. ZYPREXA [Concomitant]
     Dosage: UNK
  5. METFORMIN [Concomitant]
     Dosage: UNK
  6. LIDOCAINE [Concomitant]
     Indication: LOCAL ANAESTHESIA
     Dosage: 1%, UNK

REACTIONS (14)
  - Thrombosis [Fatal]
  - Cardiac arrest [Fatal]
  - Pulmonary embolism [Fatal]
  - Vena cava thrombosis [Fatal]
  - Type 2 diabetes mellitus [Fatal]
  - Polycystic ovaries [Fatal]
  - Back pain [Fatal]
  - Musculoskeletal pain [Fatal]
  - Pain in extremity [Fatal]
  - Local swelling [Fatal]
  - Dyspnoea [Fatal]
  - Syncope [Fatal]
  - Pain in extremity [Fatal]
  - Asthenia [Fatal]
